FAERS Safety Report 5903504-5 (Version None)
Quarter: 2008Q3

REPORT INFORMATION
  Report Type: 
  Country: None (occurrence: None)
  Receive Date: 20080919
  Receipt Date: 20080814
  Transmission Date: 20090109
  Serious: No
  Sender: FDA-Public Use
  Company Number: US-WYE-H05600208

PATIENT
  Age: 54 Year
  Sex: Female
  Weight: 111.68 kg

DRUGS (14)
  1. PRISTIQ [Suspect]
     Indication: DEPRESSION
     Dosage: 50 MG 1X PER 1 DAY, ORAL
     Route: 048
     Dates: start: 20080501, end: 20080801
  2. SINGULAIR [Concomitant]
  3. GLUCOPHAGE [Concomitant]
  4. KLONOPIN [Concomitant]
  5. JANUVIA (SITAGLIPTIN) [Concomitant]
  6. TRICOR [Concomitant]
  7. VITAMINS WITH MINERALS (VITAMINS WITH MINERALS) [Concomitant]
  8. LYRICA [Concomitant]
  9. NORVASC [Concomitant]
  10. FISH OIL, HYDROGENATED (FISH OIL, HYDROGENATED) [Concomitant]
  11. ALLEGRA [Concomitant]
  12. TOPAMAX [Concomitant]
  13. NORVASC (AMLOIPDINE BESILATE) [Concomitant]
  14. PREMARIN [Concomitant]

REACTIONS (1)
  - ALOPECIA [None]
